FAERS Safety Report 7410979-1 (Version None)
Quarter: 2011Q1

REPORT INFORMATION
  Report Type: 
  Country: None (occurrence: None)
  Receive Date: 20110302
  Receipt Date: 20101109
  Transmission Date: 20110831
  Serious: No
  Sender: FDA-Public Use
  Company Number: 016125

PATIENT
  Sex: Female

DRUGS (1)
  1. CIMZIA [Suspect]
     Dosage: SUBCUTANEOUS
     Route: 058
     Dates: start: 20091103

REACTIONS (11)
  - CLOSTRIDIAL INFECTION [None]
  - MUCOUS STOOLS [None]
  - MUSCLE SPASMS [None]
  - FREQUENT BOWEL MOVEMENTS [None]
  - HAEMATOCHEZIA [None]
  - ANAEMIA [None]
  - INJECTION SITE ERYTHEMA [None]
  - INJECTION SITE SWELLING [None]
  - VOMITING [None]
  - CONDITION AGGRAVATED [None]
  - NAUSEA [None]
